FAERS Safety Report 19264430 (Version 1)
Quarter: 2021Q2

REPORT INFORMATION
  Report Type: Spontaneous
  Country: US (occurrence: US)
  Receive Date: 20210517
  Receipt Date: 20210517
  Transmission Date: 20210717
  Serious: Yes (Other)
  Sender: FDA-Public Use
  Company Number: None

PATIENT
  Age: 32 Year
  Sex: Female
  Weight: 76.5 kg

DRUGS (3)
  1. CONTRAVE [Suspect]
     Active Substance: BUPROPION HYDROCHLORIDE\NALTREXONE HYDROCHLORIDE
     Indication: MEDICAL DIET
     Dosage: ?          QUANTITY:1 TABLET(S);?
     Route: 048
     Dates: start: 20210514, end: 20210514
  2. VITAMIN C [Concomitant]
     Active Substance: ASCORBIC ACID
  3. VITAMIN D [Concomitant]
     Active Substance: VITAMIN D NOS

REACTIONS (10)
  - Impaired driving ability [None]
  - Feeding disorder [None]
  - Speech disorder [None]
  - Nausea [None]
  - Vomiting [None]
  - Dizziness [None]
  - Feeling jittery [None]
  - Tinnitus [None]
  - Decreased appetite [None]
  - Incoherent [None]

NARRATIVE: CASE EVENT DATE: 20210514
